FAERS Safety Report 5337926-0 (Version None)
Quarter: 2007Q2

REPORT INFORMATION
  Report Type: 
  Country: None (occurrence: None)
  Receive Date: 20070327
  Receipt Date: 20061208
  Transmission Date: 20071010
  Serious: No
  Sender: FDA-Public Use
  Company Number: 230613

PATIENT
  Age: 62 Year
  Sex: Female
  Weight: 76.2 kg

DRUGS (3)
  1. AVASTIN [Suspect]
     Indication: BREAST CANCER
     Dosage: SEE IMAGE
     Route: 042
     Dates: start: 20060401, end: 20061117
  2. DOCETAXEL (DOCETAXEL) [Concomitant]
  3. THYROID TAB [Concomitant]

REACTIONS (3)
  - BONE DENSITY DECREASED [None]
  - HEADACHE [None]
  - MUSCULOSKELETAL PAIN [None]
